FAERS Safety Report 9972622 (Version 1)
Quarter: 2014Q1

REPORT INFORMATION
  Report Type: Spontaneous
  Country: US (occurrence: None)
  Receive Date: 20140128
  Receipt Date: 20140128
  Transmission Date: 20141002
  Serious: Yes (Hospitalization, Disabling)
  Sender: FDA-Public Use
  Company Number: A-US2013-90539

PATIENT
  Age: 58 Year
  Sex: Male

DRUGS (4)
  1. TRACLEER (BOSENTAN) TABLET [Suspect]
     Indication: PULMONARY ARTERIAL HYPERTENSION
     Route: 048
     Dates: start: 2013
  2. REVATIO (SILDENAFIL CITRATE) [Concomitant]
  3. COUMADIN (WARFARIN SODIUM) [Concomitant]
  4. XARELTO (RIVAROXABAN) [Concomitant]

REACTIONS (3)
  - Ascites [None]
  - Dyspnoea [None]
  - Fatigue [None]
